FAERS Safety Report 20204746 (Version 1)
Quarter: 2021Q4

REPORT INFORMATION
  Report Type: Spontaneous
  Country: US (occurrence: US)
  Receive Date: 20211220
  Receipt Date: 20211220
  Transmission Date: 20220303
  Serious: Yes (Other)
  Sender: FDA-Public Use
  Company Number: US-ALKEM LABORATORIES LIMITED-US-ALKEM-2021-07811

PATIENT
  Age: 29 Year
  Sex: Male

DRUGS (1)
  1. LAMOTRIGINE [Suspect]
     Active Substance: LAMOTRIGINE

REACTIONS (4)
  - Seizure [Unknown]
  - Drug level increased [Unknown]
  - Mental status changes [Unknown]
  - Toxicity to various agents [Unknown]
